FAERS Safety Report 23007765 (Version 2)
Quarter: 2023Q4

REPORT INFORMATION
  Report Type: Report from Study
  Country: US (occurrence: None)
  Receive Date: 20230929
  Receipt Date: 20231103
  Transmission Date: 20240110
  Serious: Yes (Life-Threatening)
  Sender: FDA-Public Use
  Company Number: US-ROCHE-3221681

PATIENT
  Age: 70 Year
  Sex: Male
  Weight: 87.8 kg

DRUGS (5)
  1. RITUXIMAB [Suspect]
     Active Substance: RITUXIMAB
     Indication: Follicular lymphoma
     Dosage: THE LAST DOSE OF RITUXIMAB PRIOR TO THE SERIOUS ADVERSE EVENT (SAE) WAS ADMINISTERED ON 29/DEC/2021
     Route: 041
     Dates: start: 20210909, end: 20211229
  2. LENALIDOMIDE [Suspect]
     Active Substance: LENALIDOMIDE
     Indication: Follicular lymphoma
     Dosage: THE LAST DOSE OF LENALIDOMIDE WAS TAKEN ON 02/AUG/2022.
     Route: 048
     Dates: start: 20210909, end: 20220802
  3. TAFASITAMAB-CXIX [Suspect]
     Active Substance: TAFASITAMAB-CXIX
     Indication: Follicular lymphoma
     Dosage: THE LAST DOSE OF BLINDED TAFASITAMAB CXIX PRIOR TO THE SAE WAS ADMINISTERED ON 27/JUL/2022
     Route: 042
     Dates: start: 20210909, end: 20220727
  4. PAXLOVID [Concomitant]
     Active Substance: NIRMATRELVIR\RITONAVIR
     Dates: start: 20221017, end: 20221022
  5. ERYTHROMYCIN [Concomitant]
     Active Substance: ERYTHROMYCIN
     Dates: start: 20221023, end: 20221028

REACTIONS (1)
  - Embolism [Recovered/Resolved]

NARRATIVE: CASE EVENT DATE: 20221031
